FAERS Safety Report 20830022 (Version 1)
Quarter: 2022Q2

REPORT INFORMATION
  Report Type: Spontaneous
  Country: GB (occurrence: GB)
  Receive Date: 20220514
  Receipt Date: 20220514
  Transmission Date: 20220720
  Serious: Yes (Other)
  Sender: FDA-Public Use
  Company Number: GB-MHRA-MED-202204282242047160-3JI8J

PATIENT
  Age: 39 Year
  Sex: Female
  Weight: 96 kg

DRUGS (2)
  1. LIOTHYRONINE [Suspect]
     Active Substance: LIOTHYRONINE
     Indication: Hypothyroidism
     Dosage: 150 MILLIGRAM DAILY; ;150MG ONCE A DAY;
     Dates: start: 20220228
  2. LEVOTHYROXINE [Suspect]
     Active Substance: LEVOTHYROXINE
     Indication: Hypothyroidism
     Dosage: 150 MILLIGRAM DAILY; 150MG ONCE A DAY;
     Route: 065
     Dates: start: 20220228

REACTIONS (2)
  - Burning sensation [Not Recovered/Not Resolved]
  - Musculoskeletal stiffness [Unknown]

NARRATIVE: CASE EVENT DATE: 20220311
